FAERS Safety Report 14315260 (Version 1)
Quarter: 2017Q4

REPORT INFORMATION
  Report Type: Not Available
  Country: None (occurrence: US)
  Receive Date: 20171221
  Receipt Date: 20171221
  Transmission Date: 20180321
  Serious: Yes (Other)
  Sender: FDA-Public Use
  Company Number: US-AKORN-75425

PATIENT
  Sex: Female

DRUGS (1)
  1. ATROPINE. [Suspect]
     Active Substance: ATROPINE

REACTIONS (6)
  - Gait disturbance [None]
  - Toxicity to various agents [None]
  - Compulsive lip biting [None]
  - Dyskinesia [None]
  - Flushing [None]
  - Caffeine allergy [None]
